FAERS Safety Report 9738542 (Version 1)
Quarter: 2013Q4

REPORT INFORMATION
  Report Type: Spontaneous
  Country: US (occurrence: US)
  Receive Date: 20131209
  Receipt Date: 20131209
  Transmission Date: 20140711
  Serious: Yes (Death)
  Sender: FDA-Public Use
  Company Number: US-AMGEN-USASP2013085372

PATIENT
  Age: 63 Year
  Sex: Male

DRUGS (2)
  1. ENBREL [Suspect]
     Indication: ANKYLOSING SPONDYLITIS
     Dosage: UNK, UNK, EVERY THREE WEEKS OR EVERY MONTH
     Route: 065
     Dates: start: 20080401
  2. ENBREL [Suspect]
     Indication: PSORIASIS

REACTIONS (8)
  - Road traffic accident [Fatal]
  - Musculoskeletal stiffness [Not Recovered/Not Resolved]
  - Spinal disorder [Not Recovered/Not Resolved]
  - Eczema [Not Recovered/Not Resolved]
  - Skin papilloma [Not Recovered/Not Resolved]
  - Asthenia [Not Recovered/Not Resolved]
  - Dry eye [Not Recovered/Not Resolved]
  - Psoriasis [Not Recovered/Not Resolved]
